FAERS Safety Report 5329640-2 (Version None)
Quarter: 2007Q1

REPORT INFORMATION
  Report Type: 
  Country: None (occurrence: None)
  Receive Date: 20070227
  Receipt Date: 20060602
  Transmission Date: 20070707
  Serious: Yes (Other)
  Sender: FDA-Public Use
  Company Number: 450692

PATIENT
  Age: 21 Year
  Sex: Female
  Weight: 86.2 kg

DRUGS (1)
  1. ACCUTANE [Suspect]
     Indication: DRUG USE FOR UNKNOWN INDICATION
     Dosage: ORAL
     Route: 048
     Dates: start: 19891114, end: 19900114

REACTIONS (3)
  - ANXIETY [None]
  - CROHN'S DISEASE [None]
  - DEPRESSION [None]
